FAERS Safety Report 18527476 (Version 2)
Quarter: 2020Q4

REPORT INFORMATION
  Report Type: Spontaneous
  Country: DE (occurrence: JP)
  Receive Date: 20201120
  Receipt Date: 20201221
  Transmission Date: 20210114
  Serious: Yes (Life-Threatening)
  Sender: FDA-Public Use
  Company Number: JP-ELI_LILLY_AND_COMPANY-JP202011008821

PATIENT
  Age: 63 Year
  Sex: Male

DRUGS (4)
  1. 5-FU [FLUOROURACIL] [Concomitant]
     Active Substance: FLUOROURACIL
     Indication: LIP AND/OR ORAL CAVITY CANCER
     Dosage: 1000 MG/M2, UNKNOWN
     Route: 041
     Dates: start: 20170403, end: 20170406
  2. CISPLATIN. [Concomitant]
     Active Substance: CISPLATIN
     Indication: LIP AND/OR ORAL CAVITY CANCER
     Dosage: 100 MG/M2, UNKNOWN
     Dates: start: 20170403, end: 20170403
  3. ERBITUX [Suspect]
     Active Substance: CETUXIMAB
     Indication: LIP AND/OR ORAL CAVITY CANCER
     Dosage: 250 MG/M2, WEEKLY (1/W)
     Route: 041
     Dates: start: 20170403, end: 20170630
  4. PACLITAXEL. [Suspect]
     Active Substance: PACLITAXEL
     Indication: LIP AND/OR ORAL CAVITY CANCER
     Dosage: 80 MG/M2, WEEKLY (1/W)
     Route: 041
     Dates: start: 20170424, end: 20170630

REACTIONS (2)
  - Septic shock [Recovered/Resolved]
  - Pneumonia [Recovered/Resolved]

NARRATIVE: CASE EVENT DATE: 20170703
